FAERS Safety Report 18574564 (Version 1)
Quarter: 2020Q4

REPORT INFORMATION
  Report Type: Other
  Country: CA (occurrence: CA)
  Receive Date: 20201203
  Receipt Date: 20201203
  Transmission Date: 20210114
  Serious: Yes (Hospitalization, Other)
  Sender: FDA-Public Use
  Company Number: CA-COVIS PHARMA B.V.-2020COV00562

PATIENT
  Age: 62 Year
  Sex: Female
  Weight: 88 kg

DRUGS (21)
  1. CLARITHROMYCIN. [Suspect]
     Active Substance: CLARITHROMYCIN
     Indication: DIVERTICULITIS
     Dosage: 1 DF, 2X/DAY
     Route: 065
  2. XOLAIR [Suspect]
     Active Substance: OMALIZUMAB
     Indication: ASTHMA
     Dosage: 300 MG
     Route: 058
  3. XOLAIR [Suspect]
     Active Substance: OMALIZUMAB
     Indication: ASTHMA
     Dosage: 300 MG
     Route: 058
  4. SPIRIVA [Concomitant]
     Active Substance: TIOTROPIUM BROMIDE MONOHYDRATE
  5. XOLAIR [Suspect]
     Active Substance: OMALIZUMAB
     Indication: ASTHMA
     Dosage: 300 MG
     Route: 058
  6. CLARITHROMYCIN. [Suspect]
     Active Substance: CLARITHROMYCIN
     Indication: BRONCHITIS
     Dosage: 500 MG, 2X/DAY
  7. CLARITHROMYCIN. [Suspect]
     Active Substance: CLARITHROMYCIN
     Indication: ABDOMINAL PAIN
     Dosage: 1 DF, 2X/DAY
  8. VENTOLIN [Concomitant]
     Active Substance: ALBUTEROL SULFATE
  9. XOLAIR [Suspect]
     Active Substance: OMALIZUMAB
     Indication: ASTHMA
     Dosage: 300 MG
     Route: 058
  10. CLARITHROMYCIN. [Suspect]
     Active Substance: CLARITHROMYCIN
     Indication: ABDOMINAL PAIN
     Dosage: 500 MG, 2X/DAY
  11. CLARITHROMYCIN. [Suspect]
     Active Substance: CLARITHROMYCIN
     Indication: PNEUMONIA
     Dosage: 500 MG, 2X/DAY
  12. CLARITHROMYCIN. [Suspect]
     Active Substance: CLARITHROMYCIN
     Indication: BRONCHITIS
     Dosage: 1 DF, 2X/DAY
     Route: 065
  13. CLARITHROMYCIN. [Suspect]
     Active Substance: CLARITHROMYCIN
     Indication: DIVERTICULITIS
     Dosage: 500 MG, 2X/DAY
  14. XOLAIR [Suspect]
     Active Substance: OMALIZUMAB
     Indication: ASTHMA
     Dosage: UNK
     Route: 058
  15. XOLAIR [Suspect]
     Active Substance: OMALIZUMAB
     Indication: ASTHMA
     Dosage: UNK
     Route: 058
  16. ALVESCO [Suspect]
     Active Substance: CICLESONIDE
     Indication: PRODUCT USED FOR UNKNOWN INDICATION
     Dosage: UNK
     Route: 055
  17. ALVESCO [Suspect]
     Active Substance: CICLESONIDE
     Dosage: 2 DF UNK
     Route: 055
  18. CLARITHROMYCIN. [Suspect]
     Active Substance: CLARITHROMYCIN
     Indication: PNEUMONIA
     Dosage: 1 DF, 2X/DAY
  19. XOLAIR [Suspect]
     Active Substance: OMALIZUMAB
     Indication: ASTHMA
     Dosage: 300 MG
     Route: 058
  20. XOLAIR [Suspect]
     Active Substance: OMALIZUMAB
     Indication: ASTHMA
     Dosage: UNK
     Route: 058
  21. ADVAIR HFA [Concomitant]
     Active Substance: FLUTICASONE PROPIONATE\SALMETEROL XINAFOATE

REACTIONS (36)
  - Dyspnoea [Not Recovered/Not Resolved]
  - Allergy to animal [Not Recovered/Not Resolved]
  - Influenza [Not Recovered/Not Resolved]
  - Pneumonia [Not Recovered/Not Resolved]
  - Cough [Not Recovered/Not Resolved]
  - Blood pressure systolic increased [Not Recovered/Not Resolved]
  - Coeliac disease [Not Recovered/Not Resolved]
  - Eye irritation [Not Recovered/Not Resolved]
  - Fatigue [Not Recovered/Not Resolved]
  - Nasopharyngitis [Not Recovered/Not Resolved]
  - Nervousness [Not Recovered/Not Resolved]
  - Syncope [Not Recovered/Not Resolved]
  - Hernia [Not Recovered/Not Resolved]
  - Herpes zoster [Not Recovered/Not Resolved]
  - Pancreatitis [Not Recovered/Not Resolved]
  - Vomiting [Not Recovered/Not Resolved]
  - Cerebrovascular accident [Not Recovered/Not Resolved]
  - Vision blurred [Not Recovered/Not Resolved]
  - Respiratory disorder [Not Recovered/Not Resolved]
  - Diverticulitis [Not Recovered/Not Resolved]
  - Drug ineffective [Not Recovered/Not Resolved]
  - Asthma [Not Recovered/Not Resolved]
  - Abdominal pain [Not Recovered/Not Resolved]
  - Sputum discoloured [Not Recovered/Not Resolved]
  - Hernia pain [Not Recovered/Not Resolved]
  - Swelling [Not Recovered/Not Resolved]
  - Bronchitis [Not Recovered/Not Resolved]
  - Gouty arthritis [Not Recovered/Not Resolved]
  - Productive cough [Not Recovered/Not Resolved]
  - Hypocalcaemia [Not Recovered/Not Resolved]
  - Nasal congestion [Not Recovered/Not Resolved]
  - Vitamin D deficiency [Not Recovered/Not Resolved]
  - Weight increased [Not Recovered/Not Resolved]
  - Swelling face [Not Recovered/Not Resolved]
  - Blood pressure increased [Not Recovered/Not Resolved]
  - Pyrexia [Not Recovered/Not Resolved]

NARRATIVE: CASE EVENT DATE: 20130717
